FAERS Safety Report 4786002-4 (Version None)
Quarter: 2005Q4

REPORT INFORMATION
  Report Type: 
  Country: None (occurrence: None)
  Receive Date: 20051003
  Receipt Date: 20050824
  Transmission Date: 20060501
  Serious: Yes (Hospitalization, Other)
  Sender: FDA-Public Use
  Company Number: PHBS2005JP12385

PATIENT
  Age: 76 Year
  Sex: Female

DRUGS (1)
  1. STARSIS [Suspect]
     Indication: DIABETES MELLITUS
     Dosage: 270 MG, QD
     Route: 048
     Dates: start: 20050624, end: 20050726

REACTIONS (3)
  - ALANINE AMINOTRANSFERASE INCREASED [None]
  - ASPARTATE AMINOTRANSFERASE INCREASED [None]
  - HEPATIC FUNCTION ABNORMAL [None]
